FAERS Safety Report 7141318-1 (Version None)
Quarter: 2010Q4

REPORT INFORMATION
  Report Type: 
  Country: None (occurrence: None)
  Receive Date: 20101122
  Receipt Date: 20101108
  Transmission Date: 20110411
  Serious: Yes (Hospitalization)
  Sender: FDA-Public Use
  Company Number: DSJ-2010-20256

PATIENT
  Age: 79 Year
  Sex: Male

DRUGS (6)
  1. BENICAR [Suspect]
     Indication: HYPERTENSION
     Dosage: 20 MG (20 MG, 1 IN 1 D), PER ORAL
     Route: 048
     Dates: start: 20100331, end: 20100801
  2. METFORMIN HCL [Concomitant]
  3. PROPATHYL NITRATE (PROPATALYNITRATE) (PROPATYLINITRATE) [Concomitant]
  4. SERTRALINE (SERTRALINE) (SERTRALINE) [Concomitant]
  5. TRAOZDONE (TRAZODONE) (TRAZODONE) [Concomitant]
  6. CLONAZEPAM (CLONZAEPAM) (CLONAZEPAM) [Concomitant]

REACTIONS (2)
  - PLEURAL EFFUSION [None]
  - PNEUMONIA [None]
